FAERS Safety Report 5409316-3 (Version None)
Quarter: 2007Q3

REPORT INFORMATION
  Report Type: 
  Country: None (occurrence: None)
  Receive Date: 20070807
  Receipt Date: 20070807
  Transmission Date: 20080115
  Serious: Yes (Hospitalization)
  Sender: FDA-Public Use
  Company Number: None

PATIENT
  Sex: Female
  Weight: 100.6 kg

DRUGS (6)
  1. INVEGA [Suspect]
     Indication: SCHIZOPHRENIA
     Dosage: 9 MG QD PO
     Route: 048
     Dates: start: 20070518, end: 20070717
  2. INVEGA [Suspect]
     Indication: SCHIZOPHRENIA
     Dosage: 6 MG QD PO
     Route: 048
     Dates: start: 20070404, end: 20070517
  3. ABILIFY [Concomitant]
  4. RISPERIDONE [Concomitant]
  5. HALDOL [Concomitant]
  6. ZYPREXA [Concomitant]

REACTIONS (1)
  - NEUROLEPTIC MALIGNANT SYNDROME [None]
